FAERS Safety Report 9373204 (Version 1)
Quarter: 2013Q2

REPORT INFORMATION
  Report Type: Spontaneous
  Country: US (occurrence: US)
  Receive Date: 20130627
  Receipt Date: 20130627
  Transmission Date: 20140414
  Serious: Yes (Death, Hospitalization, Disabling)
  Sender: FDA-Public Use
  Company Number: US-GLAXOSMITHKLINE-A0757470A

PATIENT
  Age: 70 Year
  Sex: Male
  Weight: 159.1 kg

DRUGS (4)
  1. AVANDIA [Suspect]
     Indication: TYPE 2 DIABETES MELLITUS
     Dosage: 8MG PER DAY
     Route: 048
     Dates: start: 199912, end: 200106
  2. ZESTRIL [Concomitant]
  3. GLUCOPHAGE [Concomitant]
  4. AMARYL [Concomitant]

REACTIONS (11)
  - Death [Fatal]
  - Intracardiac thrombus [Unknown]
  - Cardiac failure congestive [Unknown]
  - Heart injury [Unknown]
  - Myocardial infarction [Unknown]
  - Upper limb fracture [Unknown]
  - Dementia [Unknown]
  - Diabetes mellitus [Unknown]
  - Amnesia [Unknown]
  - Blood pressure abnormal [Unknown]
  - Presyncope [Unknown]
